FAERS Safety Report 20470523 (Version 1)
Quarter: 2022Q1

REPORT INFORMATION
  Report Type: Spontaneous
  Country: US (occurrence: US)
  Receive Date: 20220214
  Receipt Date: 20220214
  Transmission Date: 20220423
  Serious: No
  Sender: FDA-Public Use
  Company Number: US-BAUSCH-BL-2022-003584

PATIENT
  Age: 70 Year
  Sex: Female
  Weight: 79.450 kg

DRUGS (1)
  1. OPCON-A [Suspect]
     Active Substance: NAPHAZOLINE HYDROCHLORIDE\PHENIRAMINE MALEATE
     Indication: Product used for unknown indication
     Dosage: A FEW WEEKS AGO IN ONLY ONE EYE
     Route: 047

REACTIONS (6)
  - Disorientation [Recovered/Resolved]
  - Mydriasis [Recovered/Resolved]
  - Emotional distress [Unknown]
  - Impaired work ability [Unknown]
  - Feeling abnormal [Recovered/Resolved]
  - Instillation site irritation [Unknown]
